FAERS Safety Report 5675358-6 (Version None)
Quarter: 2008Q2

REPORT INFORMATION
  Report Type: 
  Country: None (occurrence: None)
  Receive Date: 20080307
  Receipt Date: 20070605
  Transmission Date: 20081010
  Serious: Yes (Other)
  Sender: FDA-Public Use
  Company Number: US200705004196

PATIENT
  Age: 67 Year
  Sex: Female
  Weight: 54.4 kg

DRUGS (2)
  1. GEMZAR [Suspect]
     Dosage: 1000 MG/M2, INTRAVENOUS
     Route: 042
     Dates: start: 20061201, end: 20070401
  2. TAXOTERE [Concomitant]

REACTIONS (1)
  - PNEUMONITIS [None]
